FAERS Safety Report 8328316-7 (Version None)
Quarter: 2012Q2

REPORT INFORMATION
  Report Type: 
  Country: None (occurrence: None)
  Receive Date: 20120502
  Receipt Date: 20120427
  Transmission Date: 20120825
  Serious: Yes (Hospitalization)
  Sender: FDA-Public Use
  Company Number: IT-PFIZER INC-2012105599

PATIENT
  Age: 81 Year
  Sex: Male

DRUGS (1)
  1. PIPERACILLIN AND TAZOBACTAM [Suspect]
     Indication: PNEUMONIA
     Dosage: 4 G+0.500 G, 3 DOSAGE UNITS, TOTAL DOSE
     Dates: start: 20120422, end: 20120422

REACTIONS (2)
  - LOSS OF CONSCIOUSNESS [None]
  - HYPOTENSION [None]
